FAERS Safety Report 10693619 (Version 14)
Quarter: 2015Q2

REPORT INFORMATION
  Report Type: Report from Study
  Country: US (occurrence: US)
  Receive Date: 20150106
  Receipt Date: 20150610
  Transmission Date: 20150821
  Serious: Yes (Other)
  Sender: FDA-Public Use
  Company Number: US-SA-2014SA177501

PATIENT
  Age: 51 Year
  Sex: Female

DRUGS (8)
  1. BACLOFEN. [Interacting]
     Active Substance: BACLOFEN
     Route: 065
  2. AUBAGIO [Suspect]
     Active Substance: TERIFLUNOMIDE
     Indication: MULTIPLE SCLEROSIS
     Route: 048
     Dates: start: 20141215
  3. AUBAGIO [Interacting]
     Active Substance: TERIFLUNOMIDE
     Indication: MULTIPLE SCLEROSIS
     Route: 048
  4. AUBAGIO [Interacting]
     Active Substance: TERIFLUNOMIDE
     Indication: MULTIPLE SCLEROSIS
     Route: 048
     Dates: end: 20150130
  5. AUBAGIO [Interacting]
     Active Substance: TERIFLUNOMIDE
     Indication: MULTIPLE SCLEROSIS
     Route: 048
     Dates: start: 2015
  6. SALINE [Concomitant]
     Active Substance: SODIUM CHLORIDE
     Route: 042
  7. MACROBID [Interacting]
     Active Substance: NITROFURANTOIN\NITROFURANTOIN MONOHYDRATE
     Indication: URINARY TRACT INFECTION
     Route: 065
     Dates: start: 20141215
  8. ROCEPHIN [Concomitant]
     Active Substance: CEFTRIAXONE SODIUM
     Route: 042

REACTIONS (29)
  - Vision blurred [Unknown]
  - Vomiting [Unknown]
  - Drug interaction [Unknown]
  - Pain in extremity [Unknown]
  - Drug dose omission [Unknown]
  - Limb discomfort [Not Recovered/Not Resolved]
  - Pain [Unknown]
  - Rash [Recovered/Resolved]
  - Paraesthesia [Recovering/Resolving]
  - Muscle spasms [Unknown]
  - Pyrexia [Unknown]
  - Burning sensation [Recovering/Resolving]
  - Mental disorder [Unknown]
  - Blood urine present [Unknown]
  - Dyskinesia [Unknown]
  - Unevaluable event [Unknown]
  - Influenza like illness [Unknown]
  - Muscle spasms [Not Recovered/Not Resolved]
  - Arthralgia [Unknown]
  - Confusional state [Recovered/Resolved]
  - Emotional disorder [Recovered/Resolved]
  - Crying [Recovered/Resolved]
  - Eating disorder [Not Recovered/Not Resolved]
  - Emotional disorder [Recovered/Resolved]
  - Blindness [Unknown]
  - Multiple sclerosis relapse [Not Recovered/Not Resolved]
  - Panic attack [Recovered/Resolved]
  - Pain [Unknown]
  - Chills [Unknown]

NARRATIVE: CASE EVENT DATE: 201412
